FAERS Safety Report 9230994 (Version 1)
Quarter: 2013Q2

REPORT INFORMATION
  Report Type: Spontaneous
  Country: US (occurrence: US)
  Receive Date: 20130415
  Receipt Date: 20130415
  Transmission Date: 20140414
  Serious: Yes (Other)
  Sender: FDA-Public Use
  Company Number: US-ASTRAZENECA-2013SE22511

PATIENT
  Age: 70 Year
  Sex: Female
  Weight: 47.2 kg

DRUGS (19)
  1. SYMBICORT [Suspect]
     Indication: CHRONIC OBSTRUCTIVE PULMONARY DISEASE
     Dosage: UNKNOWN
     Route: 055
  2. SYMBICORT [Suspect]
     Indication: DYSPNOEA
     Dosage: UNKNOWN
     Route: 055
  3. SYMBICORT [Suspect]
     Indication: CHRONIC OBSTRUCTIVE PULMONARY DISEASE
     Dosage: 160 2 PUFFS BID
     Route: 055
     Dates: start: 20121201
  4. SYMBICORT [Suspect]
     Indication: DYSPNOEA
     Dosage: 160 2 PUFFS BID
     Route: 055
     Dates: start: 20121201
  5. METOPROLOL [Suspect]
     Indication: BLOOD PRESSURE ABNORMAL
     Route: 048
     Dates: end: 201212
  6. MIRAPEX [Suspect]
     Indication: RESTLESS LEGS SYNDROME
     Route: 065
     Dates: end: 201210
  7. CIMETADINE [Concomitant]
     Indication: GASTRIC DISORDER
     Route: 048
  8. ZYRTEC OTC [Concomitant]
     Indication: RASH
     Route: 048
     Dates: start: 2011
  9. TRAMADOL [Concomitant]
     Indication: ARTHRALGIA
     Route: 048
     Dates: start: 2010
  10. ROPINIROLE [Concomitant]
     Indication: RESTLESS LEGS SYNDROME
     Route: 048
     Dates: start: 201210
  11. MUCINEX OTC [Concomitant]
     Indication: LUNG DISORDER
     Dosage: 12 HOURS BID
     Route: 048
     Dates: start: 20121201
  12. SPIRIVA [Concomitant]
     Route: 055
     Dates: start: 201204
  13. PREDNISONE [Concomitant]
     Indication: RASH
     Route: 048
     Dates: start: 201302
  14. LEFLUNOMIDE [Concomitant]
     Indication: ARTHRITIS
     Route: 048
     Dates: start: 20130329
  15. CLONIDINE [Concomitant]
     Indication: BLOOD PRESSURE ABNORMAL
     Route: 048
     Dates: start: 201212
  16. OCUVITE WITH LUTEIN [Concomitant]
     Indication: MACULAR DEGENERATION
     Dosage: DAILY
     Dates: start: 201303
  17. ALBUTEROL SULFATE [Concomitant]
     Indication: RESPIRATORY THERAPY
     Route: 055
     Dates: start: 20121201
  18. IPROTIUM [Concomitant]
     Indication: RESPIRATORY THERAPY
     Route: 055
     Dates: start: 20121201
  19. ADVAIR [Concomitant]

REACTIONS (11)
  - Cataract [Unknown]
  - Macular degeneration [Unknown]
  - Choking [Unknown]
  - Rheumatoid arthritis [Not Recovered/Not Resolved]
  - Restless legs syndrome [Unknown]
  - Chronic obstructive pulmonary disease [Unknown]
  - Dyspnoea [Unknown]
  - Rash [Not Recovered/Not Resolved]
  - Intentional drug misuse [Unknown]
  - Drug dose omission [Unknown]
  - Drug ineffective [Unknown]
